FAERS Safety Report 5744338-4 (Version None)
Quarter: 2008Q2

REPORT INFORMATION
  Report Type: 
  Country: None (occurrence: None)
  Receive Date: 20080520
  Receipt Date: 20080507
  Transmission Date: 20081010
  Serious: Yes (Hospitalization)
  Sender: FDA-Public Use
  Company Number: US-ELI_LILLY_AND_COMPANY-US200805001415

PATIENT
  Sex: Female

DRUGS (3)
  1. FORTEO [Suspect]
     Indication: BONE DISORDER
     Dosage: UNK, UNK
     Dates: start: 20061001
  2. ANTIHYPERTENSIVES [Concomitant]
     Indication: HYPERTENSION
  3. ARTHROTEC [Concomitant]
     Indication: ARTHRITIS

REACTIONS (5)
  - BLOOD PRESSURE DECREASED [None]
  - CEREBROVASCULAR ACCIDENT [None]
  - FALL [None]
  - LOSS OF CONSCIOUSNESS [None]
  - MUSCULAR WEAKNESS [None]
